FAERS Safety Report 9015427 (Version 1)
Quarter: 2013Q1

REPORT INFORMATION
  Report Type: Spontaneous
  Country: US (occurrence: US)
  Receive Date: 20130116
  Receipt Date: 20130116
  Transmission Date: 20140127
  Serious: Yes (Other)
  Sender: FDA-Public Use
  Company Number: US-ELI_LILLY_AND_COMPANY-US201301001873

PATIENT
  Sex: Female

DRUGS (4)
  1. FORTEO [Suspect]
     Indication: OSTEOPOROSIS
     Dosage: 20 UG, QD
     Dates: start: 20110923
  2. FORTEO [Suspect]
     Dosage: 20 UG, QD
  3. LISINOPRIL [Concomitant]
     Indication: BLOOD PRESSURE
     Dosage: 10 MG, QD
  4. BYSTOLIC [Concomitant]
     Indication: BLOOD PRESSURE
     Dosage: 10 MG, QD

REACTIONS (1)
  - Humerus fracture [Not Recovered/Not Resolved]
